FAERS Safety Report 7536499-1 (Version None)
Quarter: 2011Q2

REPORT INFORMATION
  Report Type: 
  Country: None (occurrence: None)
  Receive Date: 20110602
  Receipt Date: 20110520
  Transmission Date: 20111010
  Serious: Yes (Hospitalization)
  Sender: FDA-Public Use
  Company Number: DSA_46770_2011

PATIENT
  Age: 82 Year
  Sex: Female

DRUGS (5)
  1. ENALAPRIL MALEATE AND HYDROCHLOROTHIAZIDE [Suspect]
     Indication: HYPERTENSION
     Dosage: (20-12.5 MG  TAB ONCE DAILY ORAL)
     Route: 048
     Dates: start: 20080101, end: 20110302
  2. DONEPEZIL HYDROCHLORIDE [Concomitant]
  3. MACLADIN [Concomitant]
  4. CITALOPRAM HYDROBROMIDE [Suspect]
     Indication: DEPRESSION
     Dosage: (20 MG QD ORAL)
     Route: 048
     Dates: start: 20080101, end: 20110302
  5. ROCEPHIN [Concomitant]

REACTIONS (5)
  - HAEMOGLOBIN DECREASED [None]
  - BLOOD UREA INCREASED [None]
  - HYPONATRAEMIA [None]
  - FACE INJURY [None]
  - MEAN CELL VOLUME DECREASED [None]
